FAERS Safety Report 8274374-8 (Version None)
Quarter: 2012Q2

REPORT INFORMATION
  Report Type: 
  Country: None (occurrence: None)
  Receive Date: 20120409
  Receipt Date: 20120329
  Transmission Date: 20120825
  Serious: Yes (Other)
  Sender: FDA-Public Use
  Company Number: 2011AT000334

PATIENT
  Sex: Male

DRUGS (1)
  1. ALPROSTADIL [Suspect]
     Indication: PERIPHERAL ARTERIAL OCCLUSIVE DISEASE
     Dosage: 40 UG;BID;IV
     Route: 042

REACTIONS (1)
  - ELECTROCARDIOGRAM QT PROLONGED [None]
